FAERS Safety Report 4320148-X (Version None)
Quarter: 2004Q1

REPORT INFORMATION
  Report Type: 
  Country: None (occurrence: None)
  Receive Date: 20040317
  Receipt Date: 20040303
  Transmission Date: 20041129
  Serious: Yes (Hospitalization)
  Sender: FDA-Public Use
  Company Number: 2004015519

PATIENT
  Age: 54 Year
  Sex: Male

DRUGS (5)
  1. NEURONTIN [Suspect]
     Indication: ILL-DEFINED DISORDER
     Dosage: 300 MG DAILY, ORAL
     Route: 048
     Dates: start: 20030925, end: 20031111
  2. BECOZYM (VITAMIN B NOS) [Concomitant]
  3. THIAMINE HCL [Concomitant]
  4. CHLORAL HYDRATE (CHLORAL HYDRATE) [Concomitant]
  5. PIPAMPERONE (PIPAMPERONE) [Concomitant]

REACTIONS (3)
  - ABNORMAL BEHAVIOUR [None]
  - DELIRIUM [None]
  - HALLUCINATION, VISUAL [None]
